FAERS Safety Report 9491605 (Version 2)
Quarter: 2014Q1

REPORT INFORMATION
  Report Type: Spontaneous
  Country: US (occurrence: US)
  Receive Date: 20121219
  Receipt Date: 20140312
  Transmission Date: 20141002
  Serious: No
  Sender: FDA-Public Use
  Company Number: US-LUNDBECK-DKLU1083641

PATIENT
  Age: 16 Year
  Sex: Female

DRUGS (8)
  1. ONFI [Suspect]
     Indication: EPILEPSY
     Route: 048
     Dates: start: 201205, end: 201207
  2. ESCITALOPRAM ORAL DROPS [Concomitant]
     Indication: DEPRESSION
  3. DILANTIN [Concomitant]
     Indication: EPILEPSY
  4. TRILEPTAL [Concomitant]
     Indication: PRODUCT USED FOR UNKNOWN INDICATION
  5. ATIVAN [Concomitant]
     Indication: PRODUCT USED FOR UNKNOWN INDICATION
  6. CLORAZEPATE [Concomitant]
     Indication: PRODUCT USED FOR UNKNOWN INDICATION
  7. KEPPRA [Concomitant]
     Indication: PRODUCT USED FOR UNKNOWN INDICATION
  8. LYRICA [Concomitant]
     Indication: EPILEPSY

REACTIONS (6)
  - Personality change [Unknown]
  - Mental status changes [Unknown]
  - Diarrhoea [Unknown]
  - Somnolence [Unknown]
  - Irritability [Unknown]
  - Drug ineffective [Unknown]
